FAERS Safety Report 10334523 (Version 2)
Quarter: 2014Q3

REPORT INFORMATION
  Report Type: Report from Study
  Country: BR (occurrence: BR)
  Receive Date: 20140723
  Receipt Date: 20140723
  Transmission Date: 20150326
  Serious: Yes (Death, Hospitalization, Other)
  Sender: FDA-Public Use
  Company Number: BR-BAYER-2014-088040

PATIENT
  Age: 66 Year
  Sex: Male
  Weight: 72 kg

DRUGS (2)
  1. NEXAVAR [Suspect]
     Active Substance: SORAFENIB
     Indication: HEPATIC NEOPLASM
     Dosage: 200 MG, BID
     Route: 048
     Dates: start: 201311
  2. NEXAVAR [Suspect]
     Active Substance: SORAFENIB
     Indication: HEPATIC NEOPLASM
     Dosage: 400 MG, BID
     Route: 048
     Dates: start: 201401, end: 201402

REACTIONS (20)
  - Coma [Not Recovered/Not Resolved]
  - Yellow skin [Not Recovered/Not Resolved]
  - Speech disorder [Not Recovered/Not Resolved]
  - Haematemesis [Not Recovered/Not Resolved]
  - Pain in extremity [Not Recovered/Not Resolved]
  - Abdominal distension [Not Recovered/Not Resolved]
  - Abdominal pain [Not Recovered/Not Resolved]
  - Metastases to lung [Fatal]
  - Renal failure acute [Fatal]
  - Hepatocellular carcinoma [Fatal]
  - Haematemesis [Fatal]
  - Insomnia [Not Recovered/Not Resolved]
  - Aphagia [Not Recovered/Not Resolved]
  - Gait disturbance [Not Recovered/Not Resolved]
  - Haemorrhage [None]
  - Agitation [Not Recovered/Not Resolved]
  - Metastases to central nervous system [Fatal]
  - Upper gastrointestinal haemorrhage [Fatal]
  - Diarrhoea haemorrhagic [Fatal]
  - Weight decreased [Not Recovered/Not Resolved]

NARRATIVE: CASE EVENT DATE: 201401
